FAERS Safety Report 5980914-1 (Version None)
Quarter: 2008Q4

REPORT INFORMATION
  Report Type: 
  Country: None (occurrence: None)
  Receive Date: 20081205
  Receipt Date: 20080723
  Transmission Date: 20090506
  Serious: No
  Sender: FDA-Public Use
  Company Number: A0738987A

PATIENT
  Age: 52 Year
  Sex: Female

DRUGS (1)
  1. COMMIT [Suspect]

REACTIONS (8)
  - ABDOMINAL PAIN UPPER [None]
  - DIARRHOEA [None]
  - DIZZINESS [None]
  - DYSPEPSIA [None]
  - INTENTIONAL DRUG MISUSE [None]
  - POOR QUALITY SLEEP [None]
  - SALIVARY HYPERSECRETION [None]
  - WEIGHT DECREASED [None]
